FAERS Safety Report 5505958-5 (Version None)
Quarter: 2007Q4

REPORT INFORMATION
  Report Type: 
  Country: None (occurrence: None)
  Receive Date: 20071105
  Receipt Date: 20071026
  Transmission Date: 20080405
  Serious: Yes (Hospitalization, Other)
  Sender: FDA-Public Use
  Company Number: HQWYE139426MAR04

PATIENT
  Sex: Female

DRUGS (3)
  1. PREMPRO [Suspect]
     Indication: HORMONE REPLACEMENT THERAPY
     Dosage: UNSPECIFIED
     Route: 048
     Dates: start: 19950901, end: 20020201
  2. PROVERA [Suspect]
     Dosage: UNSPECIFIED
     Route: 065
     Dates: start: 19910101, end: 19950901
  3. PREMARIN [Suspect]
     Indication: OESTROGEN REPLACEMENT THERAPY
     Dosage: UNSPECIFIED
     Route: 065
     Dates: start: 19910101, end: 19950901

REACTIONS (1)
  - BREAST CANCER METASTATIC [None]
